FAERS Safety Report 5929273-0 (Version None)
Quarter: 2008Q4

REPORT INFORMATION
  Report Type: 
  Country: None (occurrence: None)
  Receive Date: 20081023
  Receipt Date: 20081023
  Transmission Date: 20090506
  Serious: Yes (Disabling)
  Sender: FDA-Public Use
  Company Number: None

PATIENT
  Sex: Female
  Weight: 88.905 kg

DRUGS (9)
  1. BENZTROPINE MESYLATE [Suspect]
     Indication: TREMOR
     Dosage: 1 MG 2-3 X PER DAY P.O.
     Route: 048
     Dates: start: 20070810, end: 20070906
  2. CLONAZEPAM [Concomitant]
  3. SEROQUEL [Concomitant]
  4. TRILEPTAL [Concomitant]
  5. WELLBUTRIN XL [Concomitant]
  6. FLUOXETINE [Concomitant]
  7. ABILIFY [Concomitant]
  8. VENTOLIN [Concomitant]
  9. MOTRIN [Concomitant]

REACTIONS (4)
  - COGNITIVE DISORDER [None]
  - CONDITION AGGRAVATED [None]
  - LOSS OF EMPLOYMENT [None]
  - TREMOR [None]
